FAERS Safety Report 14911448 (Version 1)
Quarter: 2018Q2

REPORT INFORMATION
  Report Type: Spontaneous
  Country: US (occurrence: US)
  Receive Date: 20180518
  Receipt Date: 20180518
  Transmission Date: 20180711
  Serious: Yes (Other)
  Sender: FDA-Public Use
  Company Number: US-ACCORD-067052

PATIENT
  Age: 66 Year
  Sex: Male

DRUGS (1)
  1. SIMVASTATIN ACCORD [Suspect]
     Active Substance: SIMVASTATIN
     Indication: PRODUCT USED FOR UNKNOWN INDICATION
     Dosage: STRENGTH: 40 MG, ONCE AT BEDTIME
     Route: 048

REACTIONS (4)
  - Peripheral swelling [Unknown]
  - Product taste abnormal [Unknown]
  - Product odour abnormal [Unknown]
  - Heart rate irregular [Unknown]
